FAERS Safety Report 8125663-9 (Version None)
Quarter: 2012Q1

REPORT INFORMATION
  Report Type: 
  Country: None (occurrence: None)
  Receive Date: 20120206
  Receipt Date: 20120124
  Transmission Date: 20120608
  Serious: Yes (Disabling)
  Sender: FDA-Public Use
  Company Number: 2012AP000216

PATIENT
  Age: 46 Year
  Sex: 0

DRUGS (3)
  1. LAMOTRIGINE [Suspect]
     Indication: BIPOLAR DISORDER
     Dosage: 100 MG;UNKNOWN;PO;UNKNOWN
     Route: 048
     Dates: start: 20101223
  2. DEPAKOTE [Suspect]
     Indication: BIPOLAR DISORDER
     Dosage: 750 MG;UNKNOWN;PO;BID
     Route: 048
     Dates: start: 20051019
  3. LITHIUM CARBONATE [Concomitant]

REACTIONS (1)
  - PRESBYACUSIS [None]
